FAERS Safety Report 16201281 (Version 2)
Quarter: 2019Q2

REPORT INFORMATION
  Report Type: Spontaneous
  Country: FR (occurrence: FR)
  Receive Date: 20190416
  Receipt Date: 20190521
  Transmission Date: 20190711
  Serious: Yes (Hospitalization, Other)
  Sender: FDA-Public Use
  Company Number: FR-ROCHE-2304615

PATIENT
  Age: 84 Year
  Sex: Female

DRUGS (2)
  1. LUCENTIS [Suspect]
     Active Substance: RANIBIZUMAB
     Indication: AGE-RELATED MACULAR DEGENERATION
     Route: 031
  2. LUCENTIS [Suspect]
     Active Substance: RANIBIZUMAB
     Route: 031
     Dates: start: 20130701, end: 20130701

REACTIONS (7)
  - Vitreous floaters [Unknown]
  - Angle closure glaucoma [Unknown]
  - Visual acuity reduced [Not Recovered/Not Resolved]
  - Retinal detachment [Unknown]
  - Eye inflammation [Unknown]
  - Blindness [Unknown]
  - Endophthalmitis [Unknown]

NARRATIVE: CASE EVENT DATE: 201307
